FAERS Safety Report 15790503 (Version 1)
Quarter: 2018Q4

REPORT INFORMATION
  Report Type: Spontaneous
  Country: US (occurrence: US)
  Receive Date: 20181213
  Receipt Date: 20181213
  Transmission Date: 20190205
  Serious: No
  Sender: FDA-Public Use
  Company Number: None

PATIENT
  Age: 74 Year
  Sex: Female

DRUGS (11)
  1. LEVOTHYROXINE. [Concomitant]
     Active Substance: LEVOTHYROXINE
  2. FAMOTIDINE. [Suspect]
     Active Substance: FAMOTIDINE
     Indication: LARYNGITIS
     Dosage: ?          QUANTITY:40 MG MILLIGRAM(S);?
     Route: 048
     Dates: start: 20181113, end: 20181113
  3. ALPRAZOLONE [Concomitant]
  4. CARVEDILOL. [Concomitant]
     Active Substance: CARVEDILOL
  5. ATORVASTATIN [Concomitant]
     Active Substance: ATORVASTATIN
  6. QUINAPRIL. [Concomitant]
     Active Substance: QUINAPRIL
  7. AMOLDIPINE BESYLATE [Concomitant]
  8. ADULT ASPIRIN [Concomitant]
  9. OMEPRAZOLE. [Concomitant]
     Active Substance: OMEPRAZOLE
  10. OEMXAGAXINE ER [Concomitant]
  11. VENLAFAXINE HCL [Concomitant]
     Active Substance: VENLAFAXINE HYDROCHLORIDE

REACTIONS (1)
  - Lip swelling [None]
